FAERS Safety Report 8169750-8 (Version None)
Quarter: 2012Q1

REPORT INFORMATION
  Report Type: 
  Country: None (occurrence: None)
  Receive Date: 20120228
  Receipt Date: 20120222
  Transmission Date: 20120608
  Serious: Yes (Other)
  Sender: FDA-Public Use
  Company Number: FR-AMGEN-FRASP2012011579

PATIENT
  Age: 50 Year
  Sex: Female

DRUGS (4)
  1. NEULASTA [Suspect]
     Indication: CHEMOTHERAPY
     Dosage: UNK
     Dates: start: 20120215
  2. EPIRUBICIN [Concomitant]
  3. CYCLOPHOSPHAMIDE [Concomitant]
  4. FLUOROURACIL [Concomitant]

REACTIONS (1)
  - FEBRILE BONE MARROW APLASIA [None]
